FAERS Safety Report 8820340 (Version 2)
Quarter: 2013Q2

REPORT INFORMATION
  Report Type: Report from Study
  Country: JP (occurrence: JP)
  Receive Date: 20121002
  Receipt Date: 20130415
  Transmission Date: 20140414
  Serious: Yes (Other)
  Sender: FDA-Public Use
  Company Number: JP-009507513-2012SP029228

PATIENT
  Age: 45 Year
  Sex: Male
  Weight: 75 kg

DRUGS (8)
  1. PEGINTRON [Suspect]
     Indication: CHRONIC HEPATITIS C
     Dosage: 150 MICROGRAM PER KILOGRAM, QW
     Route: 058
     Dates: start: 20120514, end: 20120514
  2. REBETOL [Suspect]
     Indication: CHRONIC HEPATITIS C
     Dosage: 800 MG, QD
     Route: 048
     Dates: start: 20120514, end: 20120520
  3. TELAVIC [Suspect]
     Indication: CHRONIC HEPATITIS C
     Dosage: 2250 MG, QD
     Route: 048
     Dates: start: 20120514, end: 20120520
  4. URSO [Concomitant]
     Indication: CHRONIC HEPATITIS C
     Dosage: 600 MG, QD
     Route: 048
  5. LOXOPROFEN [Concomitant]
     Indication: PROPHYLAXIS
     Dosage: 180 MG, QD  FORMULATION: POR
     Route: 048
     Dates: start: 20120514, end: 20120522
  6. LANSOPRAZOLE [Concomitant]
     Indication: PROPHYLAXIS
     Dosage: DAILY DOSE UNKNOWN, FORMULATION POR
     Route: 048
     Dates: start: 20120514, end: 20120522
  7. ZYLORIC [Concomitant]
     Indication: HYPERURICAEMIA
     Dosage: 100 MG, QD
     Route: 048
     Dates: start: 20120517, end: 20120522
  8. AMINO ACIDS (UNSPECIFIED) [Concomitant]
     Dosage: 1500 ML, QD
     Route: 042
     Dates: start: 20120519, end: 20120523

REACTIONS (3)
  - Decreased appetite [Unknown]
  - Nausea [Recovering/Resolving]
  - Vomiting [Recovering/Resolving]
